FAERS Safety Report 19371203 (Version 1)
Quarter: 2021Q2

REPORT INFORMATION
  Report Type: Spontaneous
  Country: PE (occurrence: PE)
  Receive Date: 20210603
  Receipt Date: 20210603
  Transmission Date: 20210717
  Serious: Yes (Hospitalization, Other)
  Sender: FDA-Public Use
  Company Number: PE-SA-2021SA163060

PATIENT
  Age: 50 Year
  Sex: Female

DRUGS (8)
  1. TOUJEO [Suspect]
     Active Substance: INSULIN GLARGINE
     Dosage: 30 IU
     Route: 058
     Dates: start: 20210501, end: 20210502
  2. GALVUS [Concomitant]
     Active Substance: VILDAGLIPTIN
     Dosage: UNK
     Route: 065
  3. TOUJEO [Suspect]
     Active Substance: INSULIN GLARGINE
     Indication: TYPE 2 DIABETES MELLITUS
     Dosage: 14 IU
     Route: 058
     Dates: start: 202101
  4. TRAMAL [Concomitant]
     Active Substance: TRAMADOL
     Dosage: UNK
     Route: 065
     Dates: start: 202102
  5. TOUJEO [Suspect]
     Active Substance: INSULIN GLARGINE
     Dosage: 18 IU
     Route: 058
     Dates: start: 202101
  6. CADITAR [CELECOXIB] [Concomitant]
     Dosage: UNK
     Route: 065
     Dates: start: 202102
  7. TOUJEO [Suspect]
     Active Substance: INSULIN GLARGINE
     Dosage: 16 IU
     Route: 058
     Dates: start: 202101
  8. PREGABALIN. [Concomitant]
     Active Substance: PREGABALIN
     Dosage: UNK
     Route: 065
     Dates: start: 202102

REACTIONS (12)
  - Musculoskeletal stiffness [Unknown]
  - Myalgia [Unknown]
  - Loss of consciousness [Recovered/Resolved]
  - Blood glucose increased [Recovered/Resolved]
  - Product dose omission issue [Unknown]
  - Dyspnoea [Recovered/Resolved]
  - Joint swelling [Unknown]
  - Anaphylactic reaction [Recovered/Resolved]
  - Oropharyngeal discomfort [Recovered/Resolved]
  - Tremor [Recovered/Resolved]
  - Erythema [Recovered/Resolved]
  - Pruritus [Recovered/Resolved]

NARRATIVE: CASE EVENT DATE: 202101
